FAERS Safety Report 19097821 (Version 2)
Quarter: 2021Q2

REPORT INFORMATION
  Report Type: Spontaneous
  Country: JP (occurrence: JP)
  Receive Date: 20210406
  Receipt Date: 20210622
  Transmission Date: 20210717
  Serious: Yes (Other)
  Sender: FDA-Public Use
  Company Number: JP-GLAXOSMITHKLINE-JP2021072376

PATIENT
  Age: 8 Decade
  Sex: Female

DRUGS (1)
  1. ZEJULA [Suspect]
     Active Substance: NIRAPARIB
     Indication: OVARIAN CANCER
     Dosage: 100 MILLIGRAM
     Route: 048
     Dates: start: 20210122

REACTIONS (6)
  - Ovarian cancer [Unknown]
  - Ascites [Unknown]
  - Disease progression [Unknown]
  - Metastases to peritoneum [Unknown]
  - Abdominal distension [Not Recovered/Not Resolved]
  - Metastases to liver [Unknown]

NARRATIVE: CASE EVENT DATE: 20210323
